FAERS Safety Report 23341596 (Version 1)
Quarter: 2023Q4

REPORT INFORMATION
  Report Type: Report from Study
  Country: US (occurrence: US)
  Receive Date: 20231227
  Receipt Date: 20231227
  Transmission Date: 20240110
  Serious: Yes (Hospitalization)
  Sender: FDA-Public Use
  Company Number: US-GILEAD-2023-0652883

PATIENT
  Sex: Female

DRUGS (25)
  1. AZTREONAM LYSINE [Suspect]
     Active Substance: AZTREONAM LYSINE
     Indication: Illness
     Dosage: INHALE 75 MG 3 TIMES DAILY 28 DAYS ON AND 28 DAYS OFF
     Route: 055
     Dates: start: 2019
  2. CUVITRU [Concomitant]
     Active Substance: HUMAN IMMUNOGLOBULIN G
  3. CULTURELLE [Concomitant]
     Active Substance: LACTOBACILLUS RHAMNOSUS
  4. DAYBUE [Concomitant]
     Active Substance: TROFINETIDE
  5. TOBRAMYCIN [Concomitant]
     Active Substance: TOBRAMYCIN
  6. GAS-X [Concomitant]
     Active Substance: DIMETHICONE
  7. MOTRIN [Concomitant]
     Active Substance: IBUPROFEN
  8. TOBI [Concomitant]
     Active Substance: TOBRAMYCIN
  9. POLY VI SOL [Concomitant]
  10. LAMICTAL [Concomitant]
     Active Substance: LAMOTRIGINE
  11. FLOVENT [Concomitant]
     Active Substance: FLUTICASONE PROPIONATE
  12. PEPCID [Concomitant]
     Active Substance: FAMOTIDINE
  13. ALBUTEROL SULFATE [Concomitant]
     Active Substance: ALBUTEROL SULFATE
  14. NANOVM [Concomitant]
     Dosage: 9-18 2 MG/2.6 G POWDER
  15. CARAFATE [Concomitant]
     Active Substance: SUCRALFATE
  16. RECTIV [Concomitant]
     Active Substance: NITROGLYCERIN
  17. FLUTICASONE PROPIONATE [Concomitant]
     Active Substance: FLUTICASONE PROPIONATE
  18. PREVACID [Concomitant]
     Active Substance: LANSOPRAZOLE
  19. EPINEPHRINE [Concomitant]
     Active Substance: EPINEPHRINE
  20. BACLOFEN [Concomitant]
     Active Substance: BACLOFEN
  21. LEVOCARNITINE [Concomitant]
     Active Substance: LEVOCARNITINE
  22. DIAZEPAM [Concomitant]
     Active Substance: DIAZEPAM
  23. XYZAL [Concomitant]
     Active Substance: LEVOCETIRIZINE DIHYDROCHLORIDE
  24. CHOLECALCIFEROL [Concomitant]
     Active Substance: CHOLECALCIFEROL
  25. MCT OIL [Concomitant]

REACTIONS (2)
  - Nasopharyngitis [Unknown]
  - Off label use [Not Recovered/Not Resolved]
